FAERS Safety Report 15428215 (Version 1)
Quarter: 2018Q3

REPORT INFORMATION
  Report Type: Spontaneous
  Country: US (occurrence: US)
  Receive Date: 20180926
  Receipt Date: 20180926
  Transmission Date: 20181010
  Serious: No
  Sender: FDA-Public Use
  Company Number: US-BIOGEN-2018BI00635216

PATIENT
  Sex: Male
  Weight: 83.9 kg

DRUGS (1)
  1. AVONEX [Suspect]
     Active Substance: INTERFERON BETA-1A
     Indication: MULTIPLE SCLEROSIS
     Dosage: 30 MCG/ 0.5 ML
     Route: 030
     Dates: start: 2003, end: 2018

REACTIONS (3)
  - Malaise [Unknown]
  - Discomfort [Unknown]
  - Cognitive disorder [Not Recovered/Not Resolved]
